FAERS Safety Report 4747605-6 (Version None)
Quarter: 2005Q3

REPORT INFORMATION
  Report Type: 
  Country: None (occurrence: None)
  Receive Date: 20050818
  Receipt Date: 20041220
  Transmission Date: 20060218
  Serious: Yes (Life-Threatening, Other)
  Sender: FDA-Public Use
  Company Number: US-BRISTOL-MYERS SQUIBB COMPANY-12800892

PATIENT
  Age: 72 Year
  Sex: Male

DRUGS (1)
  1. TEQUIN [Suspect]
     Indication: BRONCHITIS
     Route: 048
     Dates: start: 20041214, end: 20041218

REACTIONS (3)
  - DIZZINESS [None]
  - LONG QT SYNDROME [None]
  - SINUS BRADYCARDIA [None]
